FAERS Safety Report 5947943-5 (Version None)
Quarter: 2008Q4

REPORT INFORMATION
  Report Type: 
  Country: None (occurrence: None)
  Receive Date: 20081111
  Receipt Date: 20080926
  Transmission Date: 20090506
  Serious: No
  Sender: FDA-Public Use
  Company Number: A0749460A

PATIENT
  Age: 26 Year
  Sex: Female

DRUGS (1)
  1. TREXIMET [Suspect]
     Indication: MIGRAINE
     Dosage: 2TAB SINGLE DOSE
     Route: 048
     Dates: start: 20080925

REACTIONS (4)
  - FEELING ABNORMAL [None]
  - HEADACHE [None]
  - MALAISE [None]
  - NASAL DISCOMFORT [None]
